FAERS Safety Report 23129589 (Version 1)
Quarter: 2023Q4

REPORT INFORMATION
  Report Type: Spontaneous
  Country: DE (occurrence: None)
  Receive Date: 20231031
  Receipt Date: 20231031
  Transmission Date: 20240110
  Serious: Yes (Death)
  Sender: FDA-Public Use
  Company Number: 2023A243231

PATIENT
  Age: 40 Year
  Sex: Female
  Weight: 84 kg

DRUGS (7)
  1. SAPHNELO [Suspect]
     Active Substance: ANIFROLUMAB-FNIA
     Indication: Systemic lupus erythematosus
     Dosage: 4 W PER WEEK300.0MG UNKNOWN
     Route: 042
  2. LEVETIRACETAM [Concomitant]
     Active Substance: LEVETIRACETAM
     Indication: Epilepsy
     Route: 048
  3. OCTAGAM IMMUNE GLOBULIN (HUMAN) [Concomitant]
     Active Substance: HUMAN IMMUNOGLOBULIN G
     Indication: Immunodeficiency common variable
     Dosage: 4 WEEKLY
     Dates: end: 20230925
  4. PANTOPRAZOLE SODIUM [Concomitant]
     Active Substance: PANTOPRAZOLE SODIUM
     Route: 048
  5. PREGABALIN [Concomitant]
     Active Substance: PREGABALIN
     Indication: Epilepsy
     Route: 048
  6. PREDNISOLONE [Concomitant]
     Active Substance: PREDNISOLONE
     Indication: Systemic lupus erythematosus
     Route: 048
  7. HYDROXYCHLOROQUINE [Concomitant]
     Active Substance: HYDROXYCHLOROQUINE
     Indication: Systemic lupus erythematosus
     Route: 048

REACTIONS (5)
  - Vomiting [Fatal]
  - Headache [Fatal]
  - Meningitis pneumococcal [Fatal]
  - Meningoencephalitis bacterial [Fatal]
  - Pyrexia [Fatal]

NARRATIVE: CASE EVENT DATE: 20230926
